FAERS Safety Report 12660446 (Version 1)
Quarter: 2016Q3

REPORT INFORMATION
  Report Type: Spontaneous
  Country: FR (occurrence: FR)
  Receive Date: 20160817
  Receipt Date: 20160817
  Transmission Date: 20161109
  Serious: Yes (Hospitalization)
  Sender: FDA-Public Use
  Company Number: FR-FRESENIUS KABI-FK201605492

PATIENT
  Age: 69 Year
  Sex: Male

DRUGS (4)
  1. CYTARABINE (MANUFACTURER UNKNOWN) [Suspect]
     Active Substance: CYTARABINE
     Indication: ACUTE MYELOID LEUKAEMIA
     Route: 065
  2. DAUNORUBICIN [Suspect]
     Active Substance: DAUNORUBICIN
     Indication: ACUTE MYELOID LEUKAEMIA
  3. ANTI-CD33 MONOCLONAL ANTIBODY [Concomitant]
     Indication: ACUTE MYELOID LEUKAEMIA
  4. POSACONAZOLE [Concomitant]
     Active Substance: POSACONAZOLE
     Indication: FUNGAL INFECTION

REACTIONS (1)
  - Aplasia [Recovered/Resolved]
